FAERS Safety Report 17859966 (Version 1)
Quarter: 2020Q2

REPORT INFORMATION
  Report Type: Report from Study
  Country: EG (occurrence: EG)
  Receive Date: 20200604
  Receipt Date: 20200604
  Transmission Date: 20200714
  Serious: Yes (Hospitalization, Other)
  Sender: FDA-Public Use
  Company Number: NVSC2020EG153586

PATIENT
  Age: 56 Year
  Sex: Female

DRUGS (2)
  1. AFINITOR [Suspect]
     Active Substance: EVEROLIMUS
     Indication: METASTASES TO BONE
     Dosage: 10 MG, QD
     Route: 048
     Dates: start: 2017
  2. AFINITOR [Suspect]
     Active Substance: EVEROLIMUS
     Indication: METASTASES TO LYMPH NODES
     Dosage: 5 MG, QD
     Route: 048
     Dates: start: 201806, end: 202005

REACTIONS (5)
  - Haemoglobin decreased [Unknown]
  - Stomatitis [Recovering/Resolving]
  - Cerebral disorder [Recovering/Resolving]
  - Hypokinesia [Recovering/Resolving]
  - Metastases to uterus [Not Recovered/Not Resolved]

NARRATIVE: CASE EVENT DATE: 2017
